FAERS Safety Report 7005968-5 (Version None)
Quarter: 2010Q3

REPORT INFORMATION
  Report Type: 
  Country: None (occurrence: None)
  Receive Date: 20100921
  Receipt Date: 20100907
  Transmission Date: 20110219
  Serious: Yes (Death, Other)
  Sender: FDA-Public Use
  Company Number: US-CELGENEUS-163-50794-10091609

PATIENT

DRUGS (4)
  1. VIDAZA [Suspect]
     Route: 065
  2. VIDAZA [Suspect]
  3. ETANERCEPT [Suspect]
     Route: 058
  4. ETANERCEPT [Suspect]

REACTIONS (10)
  - DISEASE PROGRESSION [None]
  - ENDOCARDITIS [None]
  - HAEMORRHAGE INTRACRANIAL [None]
  - HYPOTENSION [None]
  - INFECTION [None]
  - MYOCARDIAL INFARCTION [None]
  - NEUTROPENIA [None]
  - PNEUMONIA [None]
  - SEPSIS [None]
  - THROMBOCYTOPENIA [None]
